FAERS Safety Report 5481583-X (Version None)
Quarter: 2007Q4

REPORT INFORMATION
  Report Type: 
  Country: None (occurrence: None)
  Receive Date: 20071004
  Receipt Date: 20070925
  Transmission Date: 20080405
  Serious: Yes (Death)
  Sender: FDA-Public Use
  Company Number: S07-USA-03006-01

PATIENT
  Age: 43 Year
  Sex: Female

DRUGS (6)
  1. LEXAPRO [Suspect]
     Indication: ANXIETY
     Dosage: 10 MG QD PO
     Route: 048
     Dates: start: 20070529, end: 20070623
  2. LEXAPRO [Suspect]
     Indication: DEPRESSION
     Dosage: 10 MG QD PO
     Route: 048
     Dates: start: 20070529, end: 20070623
  3. XANAX [Concomitant]
  4. ZYPREXA [Concomitant]
  5. TEMAZEPAM [Concomitant]
  6. PROZAC [Concomitant]

REACTIONS (5)
  - COMPLETED SUICIDE [None]
  - DRUG INTOLERANCE [None]
  - GUN SHOT WOUND [None]
  - HYPERSOMNIA [None]
  - SEDATION [None]
